FAERS Safety Report 11571482 (Version 2)
Quarter: 2018Q4

REPORT INFORMATION
  Report Type: Report from Study
  Country: US (occurrence: US)
  Receive Date: 20150929
  Receipt Date: 20181029
  Transmission Date: 20190204
  Serious: Yes (Hospitalization, Other)
  Sender: FDA-Public Use
  Company Number: US-SA-2015SA097828

PATIENT
  Age: 62 Year
  Sex: Male

DRUGS (6)
  1. AVONEX [Concomitant]
     Active Substance: INTERFERON BETA-1A
  2. TYSABRI [Concomitant]
     Active Substance: NATALIZUMAB
  3. TERIFLUNOMIDE. [Suspect]
     Active Substance: TERIFLUNOMIDE
     Indication: MULTIPLE SCLEROSIS
     Dosage: 14 MG,QD
     Route: 048
     Dates: start: 20140920, end: 20150401
  4. TECFIDERA [Concomitant]
     Active Substance: DIMETHYL FUMARATE
  5. LEMTRADA [Concomitant]
     Active Substance: ALEMTUZUMAB
     Indication: MULTIPLE SCLEROSIS
     Dosage: 12 MG,UNK
     Dates: start: 20180219, end: 20180223
  6. COPAXONE [Concomitant]
     Active Substance: GLATIRAMER ACETATE

REACTIONS (6)
  - Infected cyst [Unknown]
  - Infection [Unknown]
  - Synovial cyst [Unknown]
  - Drug ineffective [Unknown]
  - CD4 lymphocytes decreased [Not Recovered/Not Resolved]
  - Pneumonia [Unknown]

NARRATIVE: CASE EVENT DATE: 2015
